FAERS Safety Report 25042613 (Version 1)
Quarter: 2025Q1

REPORT INFORMATION
  Report Type: Spontaneous
  Country: US (occurrence: US)
  Receive Date: 20250305
  Receipt Date: 20250305
  Transmission Date: 20250408
  Serious: Yes (Other)
  Sender: DR REDDYS
  Company Number: US-DRL-USA-USA/2025/03/003439

PATIENT
  Age: 73 Year
  Sex: Male

DRUGS (9)
  1. AZACITIDINE [Suspect]
     Active Substance: AZACITIDINE
     Indication: Acute myeloid leukaemia
  2. CLOFARABINE [Suspect]
     Active Substance: CLOFARABINE
     Indication: Bone marrow conditioning regimen
  3. CYTOXAN [Suspect]
     Active Substance: CYCLOPHOSPHAMIDE
     Indication: Bone marrow conditioning regimen
  4. CYTOXAN [Suspect]
     Active Substance: CYCLOPHOSPHAMIDE
  5. CYTOXAN [Suspect]
     Active Substance: CYCLOPHOSPHAMIDE
  6. VENETOCLAX [Suspect]
     Active Substance: VENETOCLAX
     Indication: Acute myeloid leukaemia
  7. FLUDARABINE [Suspect]
     Active Substance: FLUDARABINE PHOSPHATE
     Indication: Bone marrow conditioning regimen
  8. CYTARABINE [Concomitant]
     Active Substance: CYTARABINE
     Indication: Bone marrow conditioning regimen
  9. CLADRIBINE [Concomitant]
     Active Substance: CLADRIBINE
     Indication: Myelodysplastic syndrome

REACTIONS (7)
  - Cytomegalovirus viraemia [Recovered/Resolved]
  - Streptococcal bacteraemia [Recovered/Resolved]
  - Acute kidney injury [Unknown]
  - Graft versus host disease [Unknown]
  - Drug ineffective for unapproved indication [Unknown]
  - Product use in unapproved indication [Unknown]
  - Product use issue [Unknown]
